FAERS Safety Report 21093985 (Version 1)
Quarter: 2022Q3

REPORT INFORMATION
  Report Type: Report from Study
  Country: CA (occurrence: CA)
  Receive Date: 20220718
  Receipt Date: 20220718
  Transmission Date: 20221027
  Serious: Yes (Other)
  Sender: FDA-Public Use
  Company Number: CA-SA-SAC20220202001565

PATIENT
  Age: 49 Year
  Sex: Female
  Weight: 68.5 kg

DRUGS (9)
  1. ANTI-THYMOCYTE GLOBULIN (RABBIT) NOS [Suspect]
     Active Substance: LAPINE T-LYMPHOCYTE IMMUNE GLOBULIN
     Indication: Chronic graft versus host disease
     Dosage: 25 MG
     Route: 065
     Dates: start: 20210913, end: 20210913
  2. ANTI-THYMOCYTE GLOBULIN (RABBIT) NOS [Suspect]
     Active Substance: LAPINE T-LYMPHOCYTE IMMUNE GLOBULIN
     Dosage: 150 MG
     Route: 065
     Dates: start: 20210914, end: 20210914
  3. ANTI-THYMOCYTE GLOBULIN (RABBIT) NOS [Suspect]
     Active Substance: LAPINE T-LYMPHOCYTE IMMUNE GLOBULIN
     Dosage: 150 MG
     Route: 065
     Dates: start: 20210916
  4. CYCLOPHOSPHAMIDE [Concomitant]
     Active Substance: CYCLOPHOSPHAMIDE
     Indication: Acute graft versus host disease
  5. MAGNESIUM OXIDE [Concomitant]
     Active Substance: MAGNESIUM OXIDE
     Dosage: 420 MG, BID
     Dates: start: 20211223
  6. VALACYCLOVIR HYDROCHLORIDE [Concomitant]
     Active Substance: VALACYCLOVIR HYDROCHLORIDE
     Dosage: 500 MG, BID
     Dates: start: 20210916
  7. SEPTRA DS [Concomitant]
     Active Substance: SULFAMETHOXAZOLE\TRIMETHOPRIM
     Dosage: 1 TABLET
     Dates: start: 20211115
  8. PANTOPRAZOLE SODIUM [Concomitant]
     Active Substance: PANTOPRAZOLE SODIUM
     Dosage: 40 MG, QD
     Dates: start: 20210914, end: 20210922
  9. LETERMOVIR [Concomitant]
     Active Substance: LETERMOVIR
     Dosage: 480 MG, QD
     Dates: start: 20210924

REACTIONS (1)
  - Lymphoid tissue hypoplasia [Recovered/Resolved]

NARRATIVE: CASE EVENT DATE: 20220131
